FAERS Safety Report 21323059 (Version 1)
Quarter: 2022Q3

REPORT INFORMATION
  Report Type: Spontaneous
  Country: KR (occurrence: KR)
  Receive Date: 20220912
  Receipt Date: 20220912
  Transmission Date: 20221027
  Serious: Yes (Other)
  Sender: FDA-Public Use
  Company Number: KR-JNJFOC-20220920818

PATIENT
  Age: 67 Year
  Sex: Male

DRUGS (2)
  1. LAZERTINIB [Suspect]
     Active Substance: LAZERTINIB
     Indication: Non-small cell lung cancer
     Route: 065
  2. AMIVANTAMAB [Suspect]
     Active Substance: AMIVANTAMAB
     Indication: Non-small cell lung cancer
     Route: 065

REACTIONS (3)
  - Anal ulcer [Unknown]
  - Scrotal ulcer [Unknown]
  - Ulcer [Unknown]
